FAERS Safety Report 8613113-5 (Version None)
Quarter: 2012Q3

REPORT INFORMATION
  Report Type: 
  Country: None (occurrence: None)
  Receive Date: 20120822
  Receipt Date: 20120727
  Transmission Date: 20120928
  Serious: Yes (Death, Life-Threatening, Other)
  Sender: FDA-Public Use
  Company Number: JP-009507513-2011SP060038

PATIENT

DRUGS (60)
  1. TEMODAL [Suspect]
     Dosage: 150 MG/M2, QD
     Route: 048
     Dates: start: 20100611, end: 20101005
  2. TEMODAL [Suspect]
     Route: 048
     Dates: start: 20080221, end: 20080225
  3. DEPAKENE [Concomitant]
     Dosage: DAILY DOSAGE UNKNOWN
     Route: 048
     Dates: start: 20061111, end: 20090907
  4. TEMODAL [Suspect]
     Dosage: 150 MG/M2, QD
     Route: 048
     Dates: start: 20090928, end: 20100504
  5. TEMODAL [Suspect]
     Route: 048
     Dates: start: 20071129, end: 20071203
  6. TEMODAL [Suspect]
     Route: 048
     Dates: start: 20080417, end: 20080421
  7. TEMODAL [Suspect]
     Route: 048
     Dates: start: 20081002, end: 20081006
  8. TEMODAL [Suspect]
     Route: 048
     Dates: start: 20081030, end: 20081103
  9. TEMODAL [Suspect]
     Route: 048
     Dates: start: 20100208, end: 20100212
  10. TEMODAL [Suspect]
     Route: 048
     Dates: start: 20100308, end: 20100312
  11. TEMODAL [Suspect]
     Route: 048
     Dates: start: 20100611, end: 20100615
  12. DEPAKENE [Suspect]
     Indication: EPILEPSY
     Route: 048
     Dates: start: 20061111, end: 20090907
  13. PHENOBARBITAL TAB [Concomitant]
     Indication: PRODUCT USED FOR UNKNOWN INDICATION
     Route: 042
     Dates: start: 20090610, end: 20090630
  14. BETAMETHASONE SODIUM PHOSPHATE [Concomitant]
     Indication: PROPHYLAXIS
     Dosage: DAILY DOSAGE UNKNOWN
     Route: 048
     Dates: start: 20090710, end: 20101017
  15. TEMODAL [Suspect]
     Dosage: 150 MG/M2, QD
     Route: 048
     Dates: start: 20070125, end: 20090518
  16. TEMODAL [Suspect]
     Route: 048
     Dates: start: 20070322, end: 20070326
  17. TEMODAL [Suspect]
     Route: 048
     Dates: start: 20070614, end: 20070618
  18. TEMODAL [Suspect]
     Route: 048
     Dates: start: 20070809, end: 20070813
  19. TEMODAL [Suspect]
     Route: 048
     Dates: start: 20071004, end: 20071008
  20. TEMODAL [Suspect]
     Route: 048
     Dates: start: 20091214, end: 20091218
  21. PHENYTOIN SODIUM CAP [Suspect]
     Indication: STATUS EPILEPTICUS
     Dates: start: 20090625, end: 20090907
  22. TEMODAL [Suspect]
     Route: 048
     Dates: start: 20080515, end: 20080519
  23. TEMODAL [Suspect]
     Route: 048
     Dates: start: 20091026, end: 20091030
  24. TEMODAL [Suspect]
     Indication: GLIOBLASTOMA MULTIFORME
     Dosage: 75 MG/M2, QD
     Route: 048
     Dates: start: 20061128, end: 20061226
  25. TEMODAL [Suspect]
     Route: 048
     Dates: start: 20070222, end: 20070226
  26. TEMODAL [Suspect]
     Route: 048
     Dates: start: 20071101, end: 20071105
  27. TEMODAL [Suspect]
     Route: 048
     Dates: start: 20080320, end: 20080324
  28. TEMODAL [Suspect]
     Route: 048
     Dates: start: 20080710, end: 20080714
  29. TEMODAL [Suspect]
     Route: 048
     Dates: start: 20090122, end: 20090126
  30. TEMODAL [Suspect]
     Route: 048
     Dates: start: 20090416, end: 20090420
  31. TEMODAL [Suspect]
     Route: 048
     Dates: start: 20100111, end: 20100115
  32. TEMODAL [Suspect]
     Route: 048
     Dates: start: 20100709, end: 20100713
  33. TEMODAL [Suspect]
     Route: 048
     Dates: start: 20100903, end: 20100907
  34. TEGRETOL [Suspect]
     Indication: STATUS EPILEPTICUS
     Route: 048
     Dates: start: 20090625, end: 20090907
  35. KYTRIL [Concomitant]
     Indication: PROPHYLAXIS
     Dosage: DAILY DOSAGE UNKNOWN
     Route: 048
     Dates: start: 20070222, end: 20101005
  36. ZONISAMIDE [Concomitant]
     Indication: PRODUCT USED FOR UNKNOWN INDICATION
     Route: 048
     Dates: start: 20090601, end: 20090907
  37. TEMODAL [Suspect]
     Route: 048
     Dates: start: 20070125, end: 20070129
  38. TEMODAL [Suspect]
     Route: 048
     Dates: start: 20070906, end: 20070910
  39. TEMODAL [Suspect]
     Route: 048
     Dates: start: 20071227, end: 20071231
  40. TEMODAL [Suspect]
     Route: 048
     Dates: start: 20080124, end: 20080128
  41. TEMODAL [Suspect]
     Route: 048
     Dates: start: 20080807, end: 20080811
  42. TEMODAL [Suspect]
     Route: 048
     Dates: start: 20090319, end: 20090323
  43. TEMODAL [Suspect]
     Route: 048
     Dates: start: 20100503, end: 20100504
  44. DIPRIVAN [Concomitant]
     Indication: PRODUCT USED FOR UNKNOWN INDICATION
     Route: 041
     Dates: start: 20090604, end: 20090630
  45. ISOZOL [Concomitant]
     Indication: PRODUCT USED FOR UNKNOWN INDICATION
     Route: 042
     Dates: start: 20090612, end: 20090618
  46. TEMODAL [Suspect]
     Route: 048
     Dates: start: 20070419, end: 20070423
  47. TEMODAL [Suspect]
     Route: 048
     Dates: start: 20070517, end: 20070521
  48. TEMODAL [Suspect]
     Route: 048
     Dates: start: 20070712, end: 20070716
  49. TEMODAL [Suspect]
     Route: 048
     Dates: start: 20080904, end: 20080908
  50. TEMODAL [Suspect]
     Route: 048
     Dates: start: 20081128, end: 20081202
  51. TEMODAL [Suspect]
     Route: 048
     Dates: start: 20081225, end: 20081229
  52. TEMODAL [Suspect]
     Route: 048
     Dates: start: 20090219, end: 20090223
  53. TEMODAL [Suspect]
     Route: 048
     Dates: start: 20090514, end: 20090518
  54. TEMODAL [Suspect]
     Route: 048
     Dates: start: 20090928, end: 20091002
  55. TEMODAL [Suspect]
     Route: 048
     Dates: start: 20100405, end: 20100409
  56. TOPIRAMATE [Concomitant]
     Indication: PRODUCT USED FOR UNKNOWN INDICATION
     Route: 048
     Dates: start: 20090603, end: 20090907
  57. BACILLUS SUBTILIS (+) LACTOBACILLUS ACIDOPHILUS (+) STREPTOCOCCUS FAEC [Concomitant]
     Indication: PRODUCT USED FOR UNKNOWN INDICATION
     Route: 048
     Dates: start: 20100501, end: 20100514
  58. TEMODAL [Suspect]
     Route: 048
     Dates: start: 20080612, end: 20080616
  59. TEMODAL [Suspect]
     Route: 048
     Dates: start: 20100806, end: 20100810
  60. TEMODAL [Suspect]
     Route: 048
     Dates: start: 20101001, end: 20101005

REACTIONS (7)
  - DIARRHOEA [None]
  - HEPATORENAL FAILURE [None]
  - MULTI-ORGAN FAILURE [None]
  - DRUG RASH WITH EOSINOPHILIA AND SYSTEMIC SYMPTOMS [None]
  - ACUTE RESPIRATORY DISTRESS SYNDROME [None]
  - DISEASE PROGRESSION [None]
  - CONVULSION [None]
